FAERS Safety Report 4882123-6 (Version None)
Quarter: 2006Q1

REPORT INFORMATION
  Report Type: 
  Country: None (occurrence: None)
  Receive Date: 20060117
  Receipt Date: 20051004
  Transmission Date: 20060701
  Serious: Yes (Hospitalization, Other)
  Sender: FDA-Public Use
  Company Number: US-MERCK-0510USA03904

PATIENT
  Age: 79 Year
  Sex: Female
  Weight: 86 kg

DRUGS (5)
  1. VIOXX [Suspect]
     Indication: ARTHRITIS
     Route: 048
     Dates: start: 20010201, end: 20030517
  2. MONOPRIL [Concomitant]
     Indication: CARDIAC DISORDER
     Route: 065
     Dates: start: 19800101, end: 20040517
  3. POTASSIUM (UNSPECIFIED) [Concomitant]
     Indication: BLOOD POTASSIUM DECREASED
     Route: 065
     Dates: start: 19900101
  4. LASIX [Concomitant]
     Indication: FLUID RETENTION
     Route: 065
     Dates: start: 19900101
  5. LIPITOR [Concomitant]
     Indication: BLOOD CHOLESTEROL INCREASED
     Route: 065
     Dates: start: 19900101

REACTIONS (5)
  - CARDIAC DISORDER [None]
  - CEREBROVASCULAR ACCIDENT [None]
  - CONVULSION [None]
  - HEART RATE IRREGULAR [None]
  - THYROID DISORDER [None]
